FAERS Safety Report 10990860 (Version 1)
Quarter: 2015Q2

REPORT INFORMATION
  Report Type: Spontaneous
  Country: US (occurrence: US)
  Receive Date: 20150406
  Receipt Date: 20150406
  Transmission Date: 20150821
  Serious: No
  Sender: FDA-Public Use
  Company Number: US-ASTRAZENECA-2015SE29655

PATIENT
  Age: 804 Month
  Sex: Female
  Weight: 104.3 kg

DRUGS (6)
  1. FLONASE [Concomitant]
     Active Substance: FLUTICASONE PROPIONATE
     Indication: SEASONAL ALLERGY
     Route: 045
     Dates: start: 2010
  2. FASLODEX [Suspect]
     Active Substance: FULVESTRANT
     Indication: BREAST CANCER METASTATIC
     Route: 030
     Dates: start: 2012
  3. EFFEXOR [Concomitant]
     Active Substance: VENLAFAXINE HYDROCHLORIDE
     Indication: HOT FLUSH
     Route: 048
     Dates: start: 2012
  4. SINGULARI [Concomitant]
     Indication: SEASONAL ALLERGY
     Route: 048
     Dates: start: 2010
  5. FASLODEX [Suspect]
     Active Substance: FULVESTRANT
     Indication: HEPATIC CANCER METASTATIC
     Route: 030
     Dates: start: 2012
  6. MOBIC [Concomitant]
     Active Substance: MELOXICAM
     Indication: KNEE OPERATION
     Route: 048
     Dates: start: 201404

REACTIONS (5)
  - Arthritis [Unknown]
  - Scar [Unknown]
  - Hot flush [Unknown]
  - Weight increased [Unknown]
  - Nerve compression [Unknown]

NARRATIVE: CASE EVENT DATE: 201207
